FAERS Safety Report 9274599 (Version 13)
Quarter: 2014Q3

REPORT INFORMATION
  Report Type: Spontaneous
  Country: BE (occurrence: BE)
  Receive Date: 20130507
  Receipt Date: 20140814
  Transmission Date: 20150326
  Serious: Yes (Hospitalization, Other)
  Sender: FDA-Public Use
  Company Number: BE-AMGEN-BELSP2013030626

PATIENT
  Age: 70 Year
  Sex: Male

DRUGS (1)
  1. NPLATE [Suspect]
     Active Substance: ROMIPLOSTIM
     Indication: IMMUNE THROMBOCYTOPENIC PURPURA
     Dosage: 0.2 ML, QWK
     Route: 058
     Dates: start: 20100120

REACTIONS (20)
  - Upper limb fracture [Not Recovered/Not Resolved]
  - Hip arthroplasty [Unknown]
  - Osteoporosis [Not Recovered/Not Resolved]
  - Fall [Recovering/Resolving]
  - Hip fracture [Unknown]
  - Dizziness [Recovering/Resolving]
  - Muscle strain [Unknown]
  - Mobility decreased [Unknown]
  - Platelet count abnormal [Unknown]
  - Infection [Unknown]
  - Arthropathy [Recovering/Resolving]
  - Insomnia [Unknown]
  - Asthenia [Recovering/Resolving]
  - Laceration [Unknown]
  - Wound [Recovering/Resolving]
  - Back disorder [Not Recovered/Not Resolved]
  - Decreased appetite [Unknown]
  - Red blood cell count decreased [Recovering/Resolving]
  - Skin atrophy [Unknown]
  - Contusion [Recovering/Resolving]

NARRATIVE: CASE EVENT DATE: 20130424
